FAERS Safety Report 6511925-5 (Version None)
Quarter: 2009Q4

REPORT INFORMATION
  Report Type: 
  Country: None (occurrence: None)
  Receive Date: 20091222
  Receipt Date: 20090626
  Transmission Date: 20100525
  Serious: No
  Sender: FDA-Public Use
  Company Number: US-ASTRAZENECA-2009UW17980

PATIENT
  Age: 47 Year
  Sex: Female
  Weight: 77.1 kg

DRUGS (7)
  1. CRESTOR [Suspect]
     Indication: BLOOD CHOLESTEROL
     Route: 048
     Dates: start: 20090501
  2. PLAVIX [Concomitant]
  3. HYDRALAZINE HCL [Concomitant]
  4. ATENOLOL [Concomitant]
  5. LISINOPRIL [Concomitant]
  6. NEXIUM [Concomitant]
  7. DOCUSATE [Concomitant]

REACTIONS (2)
  - PRURITUS [None]
  - WRONG TECHNIQUE IN DRUG USAGE PROCESS [None]
